FAERS Safety Report 5074937-7 (Version None)
Quarter: 2006Q3

REPORT INFORMATION
  Report Type: 
  Country: None (occurrence: None)
  Receive Date: 20060809
  Receipt Date: 20050622
  Transmission Date: 20061208
  Serious: Yes (Other)
  Sender: FDA-Public Use
  Company Number: GB-ABBOTT-05P-167-0303926-00

PATIENT
  Sex: Female
  Weight: 51 kg

DRUGS (7)
  1. HUMIRA [Suspect]
     Indication: RHEUMATOID ARTHRITIS
     Route: 058
     Dates: start: 20030924
  2. TEMAZEPAM [Suspect]
     Indication: HEAD INJURY
     Dosage: OVERDOSE
     Dates: start: 20050101, end: 20050101
  3. TEMAZEPAM [Suspect]
     Dates: start: 20041201
  4. PREDNISOLONE [Concomitant]
     Indication: DRUG USE FOR UNKNOWN INDICATION
  5. MELOXICAM [Concomitant]
     Indication: DRUG USE FOR UNKNOWN INDICATION
  6. PARAMOL-118 [Concomitant]
     Indication: DRUG USE FOR UNKNOWN INDICATION
  7. ACYCLOVIR [Concomitant]
     Indication: DRUG USE FOR UNKNOWN INDICATION

REACTIONS (3)
  - LIVER FUNCTION TEST ABNORMAL [None]
  - OVERDOSE [None]
  - UNEVALUABLE EVENT [None]
